FAERS Safety Report 11958125 (Version 2)
Quarter: 2016Q1

REPORT INFORMATION
  Report Type: Spontaneous
  Country: US (occurrence: US)
  Receive Date: 20160126
  Receipt Date: 20160126
  Transmission Date: 20160526
  Serious: Yes (Hospitalization)
  Sender: FDA-Public Use
  Company Number: US-AMGEN-USASP2016006669

PATIENT
  Sex: Female

DRUGS (3)
  1. CARBO                              /00740901/ [Concomitant]
     Indication: GENITAL NEOPLASM MALIGNANT FEMALE
     Dosage: UNK
  2. NEULASTA [Suspect]
     Active Substance: PEGFILGRASTIM
     Indication: PRODUCT USED FOR UNKNOWN INDICATION
     Dosage: UNK
     Route: 065
  3. TAXOL [Concomitant]
     Active Substance: PACLITAXEL
     Indication: GENITAL NEOPLASM MALIGNANT FEMALE
     Dosage: UNK

REACTIONS (2)
  - Diarrhoea [Unknown]
  - White blood cell count abnormal [Unknown]
